FAERS Safety Report 4630578-4 (Version None)
Quarter: 2005Q2

REPORT INFORMATION
  Report Type: 
  Country: None (occurrence: None)
  Receive Date: 20050408
  Receipt Date: 20050222
  Transmission Date: 20051028
  Serious: Yes (Life-Threatening, Hospitalization)
  Sender: FDA-Public Use
  Company Number: US-MERCK-0502USA02755

PATIENT
  Age: 15 Year
  Sex: Male

DRUGS (10)
  1. SINGULAIR [Suspect]
     Indication: ASTHMA
     Route: 048
     Dates: start: 20030101
  2. CLONIDINE [Concomitant]
     Route: 065
  3. ZOLOFT [Concomitant]
     Route: 065
  4. RISPERDAL [Concomitant]
     Route: 065
  5. PROTONIX [Concomitant]
     Route: 065
  6. ADDERALL TABLETS [Concomitant]
     Route: 065
  7. NASONEX [Concomitant]
     Route: 065
  8. FLOVENT [Concomitant]
     Route: 065
  9. ALBUTEROL [Concomitant]
     Route: 065
  10. [THERAPY UNSPECIFIED] [Concomitant]
     Route: 065

REACTIONS (1)
  - RESPIRATORY TRACT INFECTION [None]
